FAERS Safety Report 6790449-4 (Version None)
Quarter: 2010Q2

REPORT INFORMATION
  Report Type: 
  Country: None (occurrence: None)
  Receive Date: 20100624
  Receipt Date: 20100617
  Transmission Date: 20101027
  Serious: Yes (Death, Hospitalization)
  Sender: FDA-Public Use
  Company Number: AT-ROCHE-684450

PATIENT
  Sex: Female
  Weight: 50 kg

DRUGS (3)
  1. BEVACIZUMAB [Suspect]
     Indication: BREAST CANCER
     Dosage: DOSAGE FORM:INFUSION, LAST DOSE PRIOR TO EVENT: 04 FEBRUARY 2010, TOTAL GIVEN:755.58 MG.
     Route: 042
     Dates: start: 20090728
  2. CYCLOPHOSPHAMIDE [Suspect]
     Indication: BREAST CANCER
     Dosage: DOSAGE FORM:INFUSION,LAST DOSE PRIOR TO EVENT WAS 05 NOVEMBER 2009.TOTAL GIVEN: 918.32 MG
     Route: 042
     Dates: start: 20090728
  3. EPIRUBICIN [Suspect]
     Indication: BREAST CANCER
     Dosage: DOSAGE FORM:INFUSION, LAST DOSE PRIOR TO EVENT WAS 09 NOVEMBER 2009.TOTAL GIVEN: 1238.48 MG
     Route: 042
     Dates: start: 20090728

REACTIONS (1)
  - MULTI-ORGAN FAILURE [None]
